FAERS Safety Report 6771305-4 (Version None)
Quarter: 2010Q2

REPORT INFORMATION
  Report Type: 
  Country: None (occurrence: None)
  Receive Date: 20100616
  Receipt Date: 20100604
  Transmission Date: 20101027
  Serious: Yes (Hospitalization)
  Sender: FDA-Public Use
  Company Number: JP-WYE-H15515110

PATIENT
  Age: 40 Year
  Sex: Female

DRUGS (2)
  1. PREMARIN [Suspect]
     Indication: INFERTILITY
     Route: 048
     Dates: start: 20091001, end: 20100521
  2. HYSRON [Concomitant]
     Indication: DRUG USE FOR UNKNOWN INDICATION
     Route: 048
     Dates: start: 20100401, end: 20100521

REACTIONS (2)
  - DECREASED APPETITE [None]
  - LIVER DISORDER [None]
